FAERS Safety Report 5364709-8 (Version None)
Quarter: 2007Q2

REPORT INFORMATION
  Report Type: 
  Country: None (occurrence: None)
  Receive Date: 20070530
  Receipt Date: 20070301
  Transmission Date: 20071010
  Serious: No
  Sender: FDA-Public Use
  Company Number: 2006PV007493

PATIENT
  Age: 74 Year
  Sex: Female
  Weight: 77.1115 kg

DRUGS (2)
  1. BYETTA [Suspect]
     Dosage: 10 MCG;BID;SC; 5 MCG;BID;SC
     Route: 058
     Dates: start: 20051201, end: 20060101
  2. BYETTA [Suspect]
     Dosage: 10 MCG;BID;SC; 5 MCG;BID;SC
     Route: 058
     Dates: start: 20060102

REACTIONS (6)
  - ASTHENIA [None]
  - DRY THROAT [None]
  - MALAISE [None]
  - NAUSEA [None]
  - PRODUCTIVE COUGH [None]
  - THROAT IRRITATION [None]
